FAERS Safety Report 22746751 (Version 2)
Quarter: 2024Q4

REPORT INFORMATION
  Report Type: Report from Study
  Country: US (occurrence: US)
  Receive Date: 20230725
  Receipt Date: 20241018
  Transmission Date: 20250114
  Serious: No
  Sender: NOVARTIS
  Company Number: US-002147023-NVSC2023US163343

PATIENT
  Age: 75 Year
  Sex: Male

DRUGS (1)
  1. ENTRESTO [Suspect]
     Active Substance: SACUBITRIL\VALSARTAN
     Indication: Product used for unknown indication
     Dosage: 1 DOSAGE FORM, BID (24/26 MG)
     Route: 048
     Dates: start: 20230710

REACTIONS (5)
  - Fatigue [Unknown]
  - Dizziness [Unknown]
  - Wrong technique in product usage process [Unknown]
  - Hypoacusis [Unknown]
  - Hypotension [Unknown]

NARRATIVE: CASE EVENT DATE: 20230710
